FAERS Safety Report 13334313 (Version 1)
Quarter: 2017Q1

REPORT INFORMATION
  Report Type: Spontaneous
  Country: FR (occurrence: FR)
  Receive Date: 20170314
  Receipt Date: 20170314
  Transmission Date: 20170428
  Serious: Yes (Death)
  Sender: FDA-Public Use
  Company Number: FR-PFIZER INC-2017107669

PATIENT
  Age: 64 Year
  Sex: Female

DRUGS (8)
  1. BRICANYL [Concomitant]
     Active Substance: TERBUTALINE SULFATE
  2. ACETYLCYSTEINE. [Concomitant]
     Active Substance: ACETYLCYSTEINE
  3. FEXOFENADINE [Concomitant]
     Active Substance: FEXOFENADINE\FEXOFENADINE HYDROCHLORIDE
  4. LERCAPRESS [Concomitant]
     Active Substance: ENALAPRIL MALEATE\LERCANIDIPINE HYDROCHLORIDE
     Dosage: STRENGTH 20 MG/10 MG
  5. MEDROL [Suspect]
     Active Substance: METHYLPREDNISOLONE
     Indication: DYSPNOEA
     Dosage: UNK, SINGLE
     Route: 048
     Dates: start: 20170211, end: 20170211
  6. PYOSTACINE [Suspect]
     Active Substance: PRISTINAMYCIN
     Indication: DYSPNOEA
     Dosage: UNK, SINGLE
     Route: 048
     Dates: start: 20170211, end: 20170211
  7. SYMBICORT [Concomitant]
     Active Substance: BUDESONIDE\FORMOTEROL FUMARATE DIHYDRATE
     Dosage: 400/12 UG PER DOSE
  8. DERINOX /06053201/ [Concomitant]
     Active Substance: NAPHAZOLINE NITRATE\PREDNISOLONE

REACTIONS (3)
  - Anaphylactic shock [Fatal]
  - Coma [Fatal]
  - Brain oedema [Fatal]

NARRATIVE: CASE EVENT DATE: 20170211
